FAERS Safety Report 17011828 (Version 1)
Quarter: 2019Q4

REPORT INFORMATION
  Report Type: Spontaneous
  Country: US (occurrence: US)
  Receive Date: 20191001
  Receipt Date: 20191001
  Transmission Date: 20200122
  Serious: No
  Sender: FDA-Public Use
  Company Number: None

PATIENT
  Age: 69 Year
  Sex: Female

DRUGS (4)
  1. MYFORTIC [Concomitant]
     Active Substance: MYCOPHENOLATE SODIUM
  2. CAPECITABINE TAB 500MG [Suspect]
     Active Substance: CAPECITABINE
     Indication: COLORECTAL CANCER
     Route: 048
     Dates: start: 201909
  3. ASPIRIN. [Concomitant]
     Active Substance: ASPIRIN
  4. OXALIPLATIN. [Concomitant]
     Active Substance: OXALIPLATIN

REACTIONS (3)
  - Paraesthesia [None]
  - Mouth swelling [None]
  - Oral pain [None]

NARRATIVE: CASE EVENT DATE: 20191001
